FAERS Safety Report 13582992 (Version 1)
Quarter: 2017Q2

REPORT INFORMATION
  Report Type: Report from Study
  Country: US (occurrence: US)
  Receive Date: 20170525
  Receipt Date: 20170525
  Transmission Date: 20170830
  Serious: Yes (Hospitalization)
  Sender: FDA-Public Use
  Company Number: US-ACTELION-A-US2016-139313

PATIENT
  Age: 74 Year
  Sex: Female
  Weight: 80.73 kg

DRUGS (2)
  1. VELETRI [Suspect]
     Active Substance: EPOPROSTENOL
     Indication: PULMONARY ARTERIAL HYPERTENSION
     Dosage: 8 NG/KG, PER MIN
     Route: 042
     Dates: start: 20160624
  2. ESBRIET [Concomitant]
     Active Substance: PIRFENIDONE

REACTIONS (18)
  - Feeling cold [Unknown]
  - Urinary tract infection [Unknown]
  - Diarrhoea [Unknown]
  - Respiratory distress [Unknown]
  - Body temperature decreased [Unknown]
  - Somnolence [Unknown]
  - Decreased appetite [Unknown]
  - Hypotension [Unknown]
  - Peripheral swelling [Unknown]
  - Pneumonia [Unknown]
  - Dyspnoea [Unknown]
  - Herpes zoster [Unknown]
  - Dermatitis contact [Unknown]
  - Rheumatoid arthritis [Unknown]
  - Catheter site erythema [Unknown]
  - Catheter site pruritus [Unknown]
  - Acute respiratory failure [Unknown]
  - Oedema peripheral [Unknown]
